FAERS Safety Report 9967357 (Version 2)
Quarter: 2014Q1

REPORT INFORMATION
  Report Type: Report from Study
  Country: US (occurrence: US)
  Receive Date: 20140305
  Receipt Date: 20140305
  Transmission Date: 20141002
  Serious: Yes (Hospitalization, Other)
  Sender: FDA-Public Use
  Company Number: US-ABBVIE-13P-163-1125221-00

PATIENT
  Age: 52 Year
  Sex: Male
  Weight: 72.64 kg

DRUGS (4)
  1. HUMIRA [Suspect]
     Indication: ANKYLOSING SPONDYLITIS
     Dates: start: 201209
  2. HUMIRA [Suspect]
     Dates: start: 201304
  3. METHOTREXATE [Concomitant]
     Indication: PRODUCT USED FOR UNKNOWN INDICATION
  4. UNNAMED MEDICATION [Concomitant]
     Indication: CARDIAC DISORDER

REACTIONS (1)
  - Appendicectomy [Recovering/Resolving]
